FAERS Safety Report 6261812-5 (Version None)
Quarter: 2009Q3

REPORT INFORMATION
  Report Type: 
  Country: None (occurrence: None)
  Receive Date: 20090702
  Receipt Date: 20090309
  Transmission Date: 20100115
  Serious: No
  Sender: FDA-Public Use
  Company Number: 1000005096

PATIENT
  Age: 71 Year
  Sex: Female

DRUGS (4)
  1. BYSTOLIC [Suspect]
     Indication: HYPERTENSION
     Dosage: 5 MG (5 MG, 1 IN 1 D), ORAL
     Route: 048
     Dates: start: 20090201, end: 20090201
  2. BENICAR [Suspect]
     Indication: HYPERTENSION
     Dates: start: 20090201, end: 20090201
  3. ASPIRIN [Concomitant]
  4. LDL-REDUCE [Concomitant]

REACTIONS (3)
  - ABDOMINAL DISTENSION [None]
  - OEDEMA PERIPHERAL [None]
  - PAIN IN EXTREMITY [None]
